FAERS Safety Report 24173636 (Version 2)
Quarter: 2024Q3

REPORT INFORMATION
  Report Type: Report from Study
  Country: US (occurrence: None)
  Receive Date: 20240805
  Receipt Date: 20240831
  Transmission Date: 20241016
  Serious: Yes (Death, Other)
  Sender: ASTRAZENECA
  Company Number: 2024A174431

PATIENT
  Age: 32088 Day
  Sex: Female
  Weight: 55.3 kg

DRUGS (1)
  1. TAGRISSO [Suspect]
     Active Substance: OSIMERTINIB
     Route: 048
     Dates: start: 2019, end: 20240726

REACTIONS (1)
  - Death [Fatal]

NARRATIVE: CASE EVENT DATE: 20240726
